FAERS Safety Report 9779843 (Version 4)
Quarter: 2014Q1

REPORT INFORMATION
  Report Type: Spontaneous
  Country: US (occurrence: US)
  Receive Date: 20131223
  Receipt Date: 20140123
  Transmission Date: 20141002
  Serious: Yes (Life-Threatening, Other)
  Sender: FDA-Public Use
  Company Number: PHHY2013US105912

PATIENT
  Age: 66 Year
  Sex: Male

DRUGS (12)
  1. AMITRIPTYLINE [Suspect]
     Dosage: UNK UKN, UNK
  2. LISINOPRIL [Suspect]
     Dosage: UNK UKN, UNK
  3. WELCHOL [Suspect]
     Dosage: UNK UKN, UNK
  4. DILAUDID [Suspect]
     Indication: CANCER PAIN
     Dosage: 19.978 MG, DAILY
     Route: 037
  5. ULTRAM [Suspect]
     Dosage: UNK UKN, UNK
  6. PROTONIX [Suspect]
     Dosage: UNK UKN, UNK
  7. CYMBALTA [Suspect]
     Dosage: UNK UKN, UNK
  8. NEURONTIN [Suspect]
     Dosage: UNK UKN, UNK
  9. NORVASC [Suspect]
     Dosage: UNK UKN, UNK
  10. PRAVACHOL [Suspect]
     Dosage: UNK UKN, UNK
  11. HYDROMORPHONE [Suspect]
     Dosage: 40MG/2PERCENT
  12. BUPIVACAINE [Suspect]
     Dosage: 20 ML, DAILY

REACTIONS (10)
  - Blindness [Not Recovered/Not Resolved]
  - Cardiac arrest [Not Recovered/Not Resolved]
  - Brain injury [Not Recovered/Not Resolved]
  - Respiratory arrest [Not Recovered/Not Resolved]
  - Cerebrovascular accident [Not Recovered/Not Resolved]
  - Neck pain [Not Recovered/Not Resolved]
  - Phantom pain [Not Recovered/Not Resolved]
  - Arthralgia [Not Recovered/Not Resolved]
  - Back pain [Not Recovered/Not Resolved]
  - Overdose [Not Recovered/Not Resolved]
